FAERS Safety Report 10955558 (Version 1)
Quarter: 2015Q1

REPORT INFORMATION
  Report Type: Spontaneous
  Country: GB (occurrence: GB)
  Receive Date: 20150326
  Receipt Date: 20150326
  Transmission Date: 20150721
  Serious: Yes (Hospitalization)
  Sender: FDA-Public Use
  Company Number: GB-ALKEM-000922

PATIENT
  Sex: Male

DRUGS (7)
  1. AMOXICILLIN. [Suspect]
     Active Substance: AMOXICILLIN
     Indication: PNEUMONIA
     Route: 041
     Dates: start: 20121207
  2. CO-AMOXICLAV [Suspect]
     Active Substance: AMOXICILLIN\CLAVULANIC ACID
     Indication: PNEUMONIA
     Dosage: STRENGTH: 500MG/125MG
     Route: 048
     Dates: start: 20121213, end: 20121216
  3. CEFALEXIN [Suspect]
     Active Substance: CEPHALEXIN
     Indication: URINARY TRACT INFECTION
     Route: 048
     Dates: start: 20121204
  4. LANSOPRAZOLE. [Suspect]
     Active Substance: LANSOPRAZOLE
     Indication: PRODUCT USED FOR UNKNOWN INDICATION
     Route: 048
     Dates: end: 20121227
  5. TAZOCIN [Suspect]
     Active Substance: PIPERACILLIN SODIUM\TAZOBACTAM SODIUM
     Indication: CHOLANGITIS
     Route: 042
     Dates: start: 20121210, end: 20121212
  6. TRIMETHOPRIM/TRIMETHOPRIM LACTATE/TRIMETHOPRIM SULFATE [Suspect]
     Active Substance: TRIMETHOPRIM
     Indication: PRODUCT USED FOR UNKNOWN INDICATION
     Route: 048
     Dates: start: 20120821, end: 20120827
  7. ERTAPENEM/ERTAPENEM SODIUM [Suspect]
     Active Substance: ERTAPENEM
     Indication: CHOLANGITIS
     Route: 041
     Dates: start: 20121207, end: 20121209

REACTIONS (3)
  - Clostridium test positive [Unknown]
  - Diarrhoea [Unknown]
  - Biliary sepsis [Unknown]

NARRATIVE: CASE EVENT DATE: 20121207
